FAERS Safety Report 26210488 (Version 1)
Quarter: 2025Q4

REPORT INFORMATION
  Report Type: Spontaneous
  Country: CO (occurrence: CO)
  Receive Date: 20251229
  Receipt Date: 20251229
  Transmission Date: 20260117
  Serious: Yes (Death, Hospitalization)
  Sender: NOVO NORDISK
  Company Number: CO-NOVOPROD-1593023

PATIENT
  Age: 68 Year
  Sex: Female

DRUGS (1)
  1. NOVORAPID [Suspect]
     Active Substance: INSULIN ASPART
     Indication: Type 2 diabetes mellitus
     Dosage: UNK
     Route: 058

REACTIONS (7)
  - Cerebral disorder [Fatal]
  - Influenza like illness [Unknown]
  - Cough [Unknown]
  - Gait disturbance [Unknown]
  - Fluid retention [Unknown]
  - Condition aggravated [Unknown]
  - Diabetes mellitus [Unknown]

NARRATIVE: CASE EVENT DATE: 20250822
